FAERS Safety Report 10636706 (Version 1)
Quarter: 2014Q4

REPORT INFORMATION
  Report Type: Spontaneous
  Country: US (occurrence: None)
  Receive Date: 20141204
  Receipt Date: 20141204
  Transmission Date: 20150529
  Serious: No
  Sender: FDA-Public Use
  Company Number: None

PATIENT

DRUGS (2)
  1. DOBUTAMINE HCL DOBUTAMINE BAXTER HEALTHCARE CORPORATION [Suspect]
     Active Substance: DOBUTAMINE HYDROCHLORIDE
     Dosage: INJECTABLE  250MG/250ML (1,00   IVBAG 250 ML
     Route: 042
  2. DOBUTAMINE HCL DOBUTAMINE BAXTER HEALTHCARE CORPORATION [Suspect]
     Active Substance: DOBUTAMINE HYDROCHLORIDE
     Dosage: INJECTABLE, 1000 MG/250 ML (4,00, IV BAG, 250 ML
     Route: 042

REACTIONS (2)
  - Intercepted drug dispensing error [None]
  - Product label confusion [None]
